FAERS Safety Report 16195186 (Version 1)
Quarter: 2019Q2

REPORT INFORMATION
  Report Type: Spontaneous
  Country: US (occurrence: US)
  Receive Date: 20190415
  Receipt Date: 20190415
  Transmission Date: 20190711
  Serious: No
  Sender: FDA-Public Use
  Company Number: US-009507513-1904USA000040

PATIENT
  Age: 16 Year
  Sex: Female

DRUGS (1)
  1. NEXPLANON [Suspect]
     Active Substance: ETONOGESTREL
     Dosage: IMPLANT, 3 YEARS, LEFT ARM
     Route: 059
     Dates: start: 20180315

REACTIONS (2)
  - Adverse event [Not Recovered/Not Resolved]
  - Weight decreased [Not Recovered/Not Resolved]
